FAERS Safety Report 10004678 (Version 1)
Quarter: 2014Q1

REPORT INFORMATION
  Report Type: Spontaneous
  Country: IT (occurrence: IT)
  Receive Date: 20140312
  Receipt Date: 20140312
  Transmission Date: 20141002
  Serious: Yes (Hospitalization)
  Sender: FDA-Public Use
  Company Number: IT-ACTAVIS-2014-04311

PATIENT
  Age: 61 Year
  Sex: Female

DRUGS (2)
  1. ALPRAZOLAM (UNKNOWN) [Suspect]
     Indication: INTENTIONAL SELF-INJURY
     Dosage: 1 DF, TOTAL
     Route: 048
     Dates: start: 20131224, end: 20131224
  2. CIPRALEX [Suspect]
     Indication: INTENTIONAL SELF-INJURY
     Dosage: 80 MG, TOTAL
     Route: 048
     Dates: start: 20131224, end: 20131224

REACTIONS (4)
  - Unresponsive to stimuli [Recovered/Resolved]
  - Sopor [Recovered/Resolved]
  - Mydriasis [Recovered/Resolved]
  - Drug abuse [Recovered/Resolved]
